FAERS Safety Report 13151808 (Version 6)
Quarter: 2018Q1

REPORT INFORMATION
  Report Type: Spontaneous
  Country: US (occurrence: US)
  Receive Date: 20170125
  Receipt Date: 20180321
  Transmission Date: 20180508
  Serious: Yes (Hospitalization)
  Sender: FDA-Public Use
  Company Number: US-ACTELION-A-US2014-109898

PATIENT
  Age: 75 Year
  Sex: Female
  Weight: 45.35 kg

DRUGS (4)
  1. TREPROSTINIL [Suspect]
     Active Substance: TREPROSTINIL
     Dosage: UNK
     Route: 065
     Dates: start: 2017
  2. OPSUMIT [Suspect]
     Active Substance: MACITENTAN
     Indication: PULMONARY ARTERIAL HYPERTENSION
     Dosage: 10 MG, QD
     Route: 048
  3. RIOCIGUAT [Concomitant]
     Active Substance: RIOCIGUAT
  4. TREPROSTINIL [Suspect]
     Active Substance: TREPROSTINIL
     Indication: PRODUCT USED FOR UNKNOWN INDICATION
     Dosage: 16 MG, BID
     Route: 065

REACTIONS (15)
  - Dyspnoea [Unknown]
  - Nausea [Unknown]
  - Onychoclasis [Unknown]
  - Malaise [Unknown]
  - Vomiting [Unknown]
  - Pain [Unknown]
  - Oxygen saturation decreased [Unknown]
  - Abdominal pain upper [Unknown]
  - Eructation [Unknown]
  - Feeling abnormal [Unknown]
  - Flushing [Unknown]
  - Dizziness [Unknown]
  - Asthenia [Unknown]
  - Gait disturbance [Unknown]
  - Chills [Unknown]
